FAERS Safety Report 20095232 (Version 1)
Quarter: 2021Q4

REPORT INFORMATION
  Report Type: Spontaneous
  Country: JP (occurrence: JP)
  Receive Date: 20211122
  Receipt Date: 20211122
  Transmission Date: 20220303
  Serious: Yes (Other)
  Sender: FDA-Public Use
  Company Number: JP-SUN PHARMACEUTICAL INDUSTRIES LTD-2021R1-317494

PATIENT
  Age: 7 Year
  Sex: Male

DRUGS (4)
  1. SULFAMETHOXAZOLE\TRIMETHOPRIM [Suspect]
     Active Substance: SULFAMETHOXAZOLE\TRIMETHOPRIM
     Indication: Chorioretinal disorder
     Dosage: 14 MILLIGRAM/KILOGRAM, DAILY
     Route: 065
  2. SULFAMETHOXAZOLE\TRIMETHOPRIM [Suspect]
     Active Substance: SULFAMETHOXAZOLE\TRIMETHOPRIM
     Indication: Toxoplasmosis
  3. ATOVAQUONE [Suspect]
     Active Substance: ATOVAQUONE
     Indication: Chorioretinal disorder
     Dosage: 40 MILLIGRAM/KILOGRAM, DAILY
     Route: 065
  4. ATOVAQUONE [Suspect]
     Active Substance: ATOVAQUONE
     Indication: Toxoplasmosis

REACTIONS (2)
  - Drug ineffective [Unknown]
  - Disease progression [Unknown]
